FAERS Safety Report 8412073-X (Version None)
Quarter: 2012Q2

REPORT INFORMATION
  Report Type: 
  Country: None (occurrence: None)
  Receive Date: 20120605
  Receipt Date: 20120501
  Transmission Date: 20120825
  Serious: No
  Sender: FDA-Public Use
  Company Number: US-AMGEN-USASP2012028377

PATIENT
  Age: 61 Year
  Sex: Female

DRUGS (1)
  1. ENBREL [Suspect]
     Indication: RHEUMATOID ARTHRITIS
     Dosage: 50 MG, QWK
     Dates: start: 20120406

REACTIONS (15)
  - DRY EYE [None]
  - PHOTOPHOBIA [None]
  - EYE DISCHARGE [None]
  - EYE SWELLING [None]
  - SKIN DISORDER [None]
  - ARTHRALGIA [None]
  - INJECTION SITE PAIN [None]
  - OCULAR HYPERAEMIA [None]
  - SCAB [None]
  - FEELING ABNORMAL [None]
  - JOINT DISLOCATION [None]
  - VISION BLURRED [None]
  - JOINT SWELLING [None]
  - LYMPH NODE PAIN [None]
  - HAIR DISORDER [None]
